FAERS Safety Report 14604974 (Version 1)
Quarter: 2018Q1

REPORT INFORMATION
  Report Type: Spontaneous
  Country: SK (occurrence: SK)
  Receive Date: 20180306
  Receipt Date: 20180306
  Transmission Date: 20180509
  Serious: Yes (Other)
  Sender: FDA-Public Use
  Company Number: SK-SHIRE-SK201737475

PATIENT

DRUGS (8)
  1. HUMAN ALBUMIN [Suspect]
     Active Substance: ALBUMIN HUMAN
     Indication: HYPOALBUMINAEMIA
  2. IMATINIB [Concomitant]
     Active Substance: IMATINIB
     Indication: PLEURAL EFFUSION
  3. HUMAN ALBUMIN [Suspect]
     Active Substance: ALBUMIN HUMAN
     Indication: PLEURAL EFFUSION
     Route: 065
  4. CEFUROXIM                          /00454602/ [Suspect]
     Active Substance: CEFUROXIME
     Indication: PLEURAL EFFUSION
     Route: 065
  5. VALSARTAN. [Suspect]
     Active Substance: VALSARTAN
     Indication: PLEURAL EFFUSION
     Route: 065
  6. DASATINIB. [Concomitant]
     Active Substance: DASATINIB
     Indication: PLEURAL EFFUSION
  7. MOXIFLOXACIN. [Suspect]
     Active Substance: MOXIFLOXACIN
     Indication: PLEURAL EFFUSION
     Route: 065
  8. NILOTINIB [Suspect]
     Active Substance: NILOTINIB
     Indication: PLEURAL EFFUSION
     Route: 065

REACTIONS (1)
  - Drug effect incomplete [Unknown]
